FAERS Safety Report 7128605-8 (Version None)
Quarter: 2010Q4

REPORT INFORMATION
  Report Type: 
  Country: None (occurrence: None)
  Receive Date: 20101103
  Receipt Date: 20101021
  Transmission Date: 20110411
  Serious: Yes (Hospitalization, Other)
  Sender: FDA-Public Use
  Company Number: 2010SP042284

PATIENT
  Age: 40 Year
  Sex: Female

DRUGS (1)
  1. NUVARING [Suspect]
     Indication: CONTRACEPTION
     Dates: start: 20050101, end: 20070819

REACTIONS (4)
  - BACK DISORDER [None]
  - DEEP VEIN THROMBOSIS [None]
  - SURGERY [None]
  - TACHYCARDIA [None]
